FAERS Safety Report 9634157 (Version 1)
Quarter: 2013Q4

REPORT INFORMATION
  Report Type: Spontaneous
  Country: AU (occurrence: AU)
  Receive Date: 20131021
  Receipt Date: 20131021
  Transmission Date: 20140711
  Serious: Yes (Death)
  Sender: FDA-Public Use
  Company Number: AU-PURDUE-USA-2013-0107615

PATIENT
  Sex: Male

DRUGS (1)
  1. DILAUDID INJECTION [Suspect]
     Indication: CANCER PAIN
     Dosage: UNK, SEE TEXT
     Route: 058
     Dates: start: 201308, end: 201308

REACTIONS (2)
  - Malignant neoplasm progression [Fatal]
  - Expired drug administered [Unknown]
